FAERS Safety Report 10917546 (Version 1)
Quarter: 2015Q1

REPORT INFORMATION
  Report Type: Spontaneous
  Country: US (occurrence: None)
  Receive Date: 20150312
  Receipt Date: 20150312
  Transmission Date: 20150721
  Serious: No
  Sender: FDA-Public Use
  Company Number: None

PATIENT
  Age: 43 Year
  Sex: Male

DRUGS (7)
  1. MELATONIN [Concomitant]
     Active Substance: MELATONIN
  2. OXYCODONE [Concomitant]
     Active Substance: OXYCODONE
  3. HARVONI [Suspect]
     Active Substance: LEDIPASVIR\SOFOSBUVIR
     Indication: CHRONIC HEPATITIS C
     Route: 048
     Dates: start: 20150207
  4. LEVOTHROID [Concomitant]
     Active Substance: LEVOTHYROXINE SODIUM
  5. POTASSIUM [Concomitant]
     Active Substance: POTASSIUM
  6. XANAX [Concomitant]
     Active Substance: ALPRAZOLAM
  7. MEHTADONE [Concomitant]

REACTIONS (4)
  - Insomnia [None]
  - Dry mouth [None]
  - Mouth haemorrhage [None]
  - Lip dry [None]

NARRATIVE: CASE EVENT DATE: 20150207
